FAERS Safety Report 17691738 (Version 5)
Quarter: 2020Q4

REPORT INFORMATION
  Report Type: Report from Study
  Country: None (occurrence: AU)
  Receive Date: 20200422
  Receipt Date: 20201230
  Transmission Date: 20210113
  Serious: Yes (Hospitalization)
  Sender: FDA-Public Use
  Company Number: AU-ABBVIE-20K-008-3372726-00

PATIENT
  Age: 66 Year
  Sex: Female

DRUGS (12)
  1. PRAMIPEXOLE ER [Concomitant]
     Active Substance: PRAMIPEXOLE DIHYDROCHLORIDE
     Indication: PRODUCT USED FOR UNKNOWN INDICATION
     Dosage: NOCTE
  2. AMANTADINE. [Concomitant]
     Active Substance: AMANTADINE HYDROCHLORIDE
     Indication: PRODUCT USED FOR UNKNOWN INDICATION
     Dosage: 200MG MANE 100MG MIDDIE
  3. KENACOMB [Concomitant]
     Indication: PRODUCT USED FOR UNKNOWN INDICATION
  4. CIPROFLOXACIN. [Concomitant]
     Active Substance: CIPROFLOXACIN
     Indication: PULMONARY EMBOLISM
  5. DUODOPA [Suspect]
     Active Substance: CARBIDOPA\LEVODOPA
     Indication: PARKINSON^S DISEASE
     Dosage: 11.7ML MD, 2.7ML/HR CD, 1.7MLS ED?0600-2030 HOURS
     Route: 050
     Dates: start: 20161018, end: 20200714
  6. DUODOPA [Suspect]
     Active Substance: CARBIDOPA\LEVODOPA
  7. COLOXYL [Concomitant]
     Indication: PRODUCT USED FOR UNKNOWN INDICATION
  8. OXYBUTYNIN. [Concomitant]
     Active Substance: OXYBUTYNIN CHLORIDE
     Indication: PRODUCT USED FOR UNKNOWN INDICATION
     Dosage: NOCTE
  9. MIRTAZAPINE. [Concomitant]
     Active Substance: MIRTAZAPINE
     Indication: PRODUCT USED FOR UNKNOWN INDICATION
     Dosage: NOCTE
  10. ESOMEPRAZOLE. [Concomitant]
     Active Substance: ESOMEPRAZOLE MAGNESIUM
     Indication: PRODUCT USED FOR UNKNOWN INDICATION
  11. BENEFIBER [Concomitant]
     Active Substance: STARCH, WHEAT
     Indication: PRODUCT USED FOR UNKNOWN INDICATION
  12. MOVICOL [Concomitant]
     Active Substance: POLYETHYLENE GLYCOL 3350\POTASSIUM CHLORIDE\SODIUM BICARBONATE\SODIUM CHLORIDE
     Indication: PRODUCT USED FOR UNKNOWN INDICATION

REACTIONS (19)
  - Lymphocytosis [Unknown]
  - Barrett^s oesophagus [Unknown]
  - Micturition urgency [Not Recovered/Not Resolved]
  - Pulmonary embolism [Unknown]
  - Stoma site infection [Unknown]
  - Weight increased [Unknown]
  - Tremor [Unknown]
  - Stoma site infection [Recovering/Resolving]
  - Gastrostomy tube removal [Unknown]
  - Chronic gastritis [Unknown]
  - Stoma site discharge [Not Recovered/Not Resolved]
  - Abnormal dreams [Unknown]
  - Hypotension [Unknown]
  - Medical device site pain [Unknown]
  - Parkinson^s disease [Recovering/Resolving]
  - Freezing phenomenon [Unknown]
  - On and off phenomenon [Recovering/Resolving]
  - Dizziness postural [Unknown]
  - Dyskinesia [Unknown]

NARRATIVE: CASE EVENT DATE: 201610
